FAERS Safety Report 16980064 (Version 2)
Quarter: 2020Q1

REPORT INFORMATION
  Report Type: Report from Study
  Country: HK (occurrence: HK)
  Receive Date: 20191031
  Receipt Date: 20200108
  Transmission Date: 20200409
  Serious: Yes (Hospitalization)
  Sender: FDA-Public Use
  Company Number: HK-PFIZER INC-2019459331

PATIENT
  Age: 43 Year
  Sex: Female
  Weight: 48.8 kg

DRUGS (14)
  1. AXITINIB [Suspect]
     Active Substance: AXITINIB
     Dosage: 3 MG, 2X/DAY
     Route: 048
     Dates: start: 20191031, end: 20191128
  2. ENOXAPARIN SODIUM. [Concomitant]
     Active Substance: ENOXAPARIN SODIUM
     Indication: DEEP VEIN THROMBOSIS
     Dosage: UNK
     Route: 058
     Dates: start: 20191021, end: 20191216
  3. AVELUMAB [Suspect]
     Active Substance: AVELUMAB
     Dosage: 10 MG/KG, EVERY TWO WEEKS (Q2W)
     Dates: start: 20190725, end: 20190920
  4. PREGABALIN. [Concomitant]
     Active Substance: PREGABALIN
     Indication: BONE PAIN
     Dosage: UNK
     Route: 048
     Dates: start: 20180705
  5. PIRITON [Concomitant]
     Active Substance: CHLORPHENIRAMINE MALEATE
     Indication: ERYTHEMA
     Dosage: UNK
     Route: 048
     Dates: start: 20191008
  6. EDOXABAN TOSILATE [Concomitant]
     Active Substance: EDOXABAN TOSYLATE
     Indication: DEEP VEIN THROMBOSIS
     Dosage: UNK
     Route: 048
     Dates: start: 20191217
  7. MORPHINE [Concomitant]
     Active Substance: MORPHINE
     Indication: BONE PAIN
     Dosage: UNK
     Route: 048
     Dates: start: 20190815
  8. NYSTATIN. [Concomitant]
     Active Substance: NYSTATIN
     Indication: MUCOSAL PAIN
     Dosage: UNK
     Dates: start: 20191007, end: 20191011
  9. AXITINIB [Suspect]
     Active Substance: AXITINIB
     Dosage: 5 MG, 2X/DAY
     Route: 048
     Dates: start: 20190725, end: 20191004
  10. PREDNISOLONE. [Concomitant]
     Active Substance: PREDNISOLONE
     Indication: STEROID THERAPY
     Dosage: UNK
     Route: 048
     Dates: start: 20191010
  11. AUGMENTIN [Concomitant]
     Active Substance: AMOXICILLIN\CLAVULANATE POTASSIUM
     Indication: ANTIBIOTIC PROPHYLAXIS
     Dosage: UNK
     Route: 048
     Dates: start: 20191004, end: 20191011
  12. ZINC CREAM [Concomitant]
     Indication: RASH
     Dosage: UNK
     Route: 061
     Dates: start: 20191007, end: 20191011
  13. NORMAL SALINE [Concomitant]
     Active Substance: SODIUM CHLORIDE
     Indication: HYPONATRAEMIA
     Dosage: UNK
     Route: 042
     Dates: start: 20191007, end: 20191007
  14. METHYLPREDNISOLONE. [Concomitant]
     Active Substance: METHYLPREDNISOLONE
     Indication: BLOOD BILIRUBIN INCREASED
     Dosage: UNK
     Route: 042
     Dates: start: 20191005, end: 20191008

REACTIONS (1)
  - Peripheral swelling [Not Recovered/Not Resolved]

NARRATIVE: CASE EVENT DATE: 20191015
